FAERS Safety Report 17209996 (Version 2)
Quarter: 2020Q1

REPORT INFORMATION
  Report Type: Report from Study
  Country: DE (occurrence: DE)
  Receive Date: 20191227
  Receipt Date: 20200113
  Transmission Date: 20200409
  Serious: Yes (Other)
  Sender: FDA-Public Use
  Company Number: DE-MYLANLABS-2019M1128508

PATIENT
  Sex: Female
  Weight: 90 kg

DRUGS (5)
  1. PREGABALIN. [Concomitant]
     Active Substance: PREGABALIN
     Indication: NEURALGIA
     Dosage: 25 MG (MORNING) 50MG (NIGHT)
     Route: 065
     Dates: start: 20161205
  2. EXEMESTANE. [Suspect]
     Active Substance: EXEMESTANE
     Indication: BREAST CANCER METASTATIC
     Dosage: 25 MG, QD
     Route: 048
     Dates: start: 20180526, end: 20190130
  3. FULVESTRANT. [Suspect]
     Active Substance: FULVESTRANT
     Dosage: 500 MG, QD (EVERY 4 WEEKS)
     Route: 030
     Dates: start: 20190131, end: 20190911
  4. FULVESTRANT. [Suspect]
     Active Substance: FULVESTRANT
     Indication: BREAST CANCER METASTATIC
     Dosage: 500 MG, QD (EVERY 4 WEEKS)
     Route: 030
  5. KISQALI [Suspect]
     Active Substance: RIBOCICLIB
     Indication: BREAST CANCER METASTATIC
     Dosage: 600 MG, FOR 3 WEEKS/ THEN 1 WEEK PAUSE
     Route: 048
     Dates: start: 20180526

REACTIONS (2)
  - Haematoma [Unknown]
  - Abscess limb [Recovered/Resolved]

NARRATIVE: CASE EVENT DATE: 20190814
